FAERS Safety Report 10800503 (Version 1)
Quarter: 2015Q1

REPORT INFORMATION
  Report Type: Spontaneous
  Country: US (occurrence: US)
  Receive Date: 20150216
  Receipt Date: 20150216
  Transmission Date: 20150721
  Serious: No
  Sender: FDA-Public Use
  Company Number: US-ALLERGAN-1410315US

PATIENT
  Age: 41 Year
  Sex: Female

DRUGS (1)
  1. RESTASIS [Suspect]
     Active Substance: CYCLOSPORINE
     Indication: DRY EYE
     Dosage: 2 GTT, BID
     Route: 047
     Dates: start: 20140516, end: 20140519

REACTIONS (8)
  - Lid margin discharge [Unknown]
  - Erythema of eyelid [Unknown]
  - Eye irritation [Unknown]
  - Eye discharge [Unknown]
  - Madarosis [Unknown]
  - Eye pain [Unknown]
  - Eyelid oedema [Unknown]
  - Headache [Unknown]

NARRATIVE: CASE EVENT DATE: 20140519
